FAERS Safety Report 4944923-3 (Version None)
Quarter: 2006Q1

REPORT INFORMATION
  Report Type: 
  Country: None (occurrence: None)
  Receive Date: 20060315
  Receipt Date: 20051205
  Transmission Date: 20060701
  Serious: Yes (Hospitalization)
  Sender: FDA-Public Use
  Company Number: US-MERCK-0512USA00814

PATIENT
  Age: 48 Year
  Sex: Male
  Weight: 145 kg

DRUGS (12)
  1. VIOXX [Suspect]
     Indication: RHEUMATOID ARTHRITIS
     Route: 048
     Dates: start: 20000101, end: 20020301
  2. VIOXX [Suspect]
     Indication: PAIN
     Route: 048
     Dates: start: 20000101, end: 20020301
  3. PERCOCET [Concomitant]
     Indication: PAIN
     Route: 065
     Dates: start: 19970301
  4. OXYCONTIN [Concomitant]
     Indication: PAIN
     Route: 065
     Dates: start: 19970101
  5. ASPIRIN [Concomitant]
     Indication: RHEUMATOID ARTHRITIS
     Route: 065
     Dates: start: 19970101
  6. ASPIRIN [Concomitant]
     Indication: PROPHYLAXIS
     Route: 065
     Dates: start: 19970101
  7. COREG [Concomitant]
     Indication: HYPERTENSION
     Route: 065
     Dates: start: 19970101
  8. COREG [Concomitant]
     Indication: CARDIAC DISORDER
     Route: 065
     Dates: start: 19970101
  9. LASIX [Concomitant]
     Indication: OEDEMA PERIPHERAL
     Route: 065
     Dates: start: 19970101
  10. LASIX [Concomitant]
     Indication: HYPERTENSION
     Route: 065
     Dates: start: 19970101
  11. COUMADIN [Concomitant]
     Indication: DEEP VEIN THROMBOSIS
     Route: 065
     Dates: start: 19970101, end: 20050101
  12. ELAVIL [Concomitant]
     Indication: ANTIDEPRESSANT THERAPY
     Route: 065

REACTIONS (7)
  - CARDIAC DISORDER [None]
  - CARDIAC FAILURE CONGESTIVE [None]
  - DEEP VEIN THROMBOSIS [None]
  - DIABETES MELLITUS [None]
  - PRESCRIBED OVERDOSE [None]
  - RENAL DISORDER [None]
  - THROMBOSIS [None]
